FAERS Safety Report 12831306 (Version 3)
Quarter: 2016Q4

REPORT INFORMATION
  Report Type: Report from Study
  Country: None (occurrence: NL)
  Receive Date: 20161008
  Receipt Date: 20161008
  Transmission Date: 20170207
  Serious: Yes (Other)
  Sender: FDA-Public Use
  Company Number: NL-ABBVIE-16P-114-1747169-00

PATIENT
  Age: 77 Year
  Sex: Male

DRUGS (1)
  1. DUODOPA [Suspect]
     Active Substance: CARBIDOPA\LEVODOPA
     Indication: PARKINSON^S DISEASE
     Dosage: MD: 15, CD: 4.3, ED: 2
     Route: 050
     Dates: start: 20130108

REACTIONS (6)
  - Dementia [Not Recovered/Not Resolved]
  - Mastication disorder [Unknown]
  - Tooth extraction [Recovered/Resolved]
  - Blood pressure decreased [Recovered/Resolved]
  - Hallucination [Recovered/Resolved]
  - Oral mucosal blistering [Not Recovered/Not Resolved]

NARRATIVE: CASE EVENT DATE: 201609
